FAERS Safety Report 7332099-7 (Version None)
Quarter: 2011Q1

REPORT INFORMATION
  Report Type: 
  Country: None (occurrence: None)
  Receive Date: 20110222
  Receipt Date: 20110207
  Transmission Date: 20110831
  Serious: Yes (Hospitalization)
  Sender: FDA-Public Use
  Company Number: GER/GER/10/0016922

PATIENT
  Age: 42 Year
  Sex: Male

DRUGS (3)
  1. IBUPROFEN [Concomitant]
  2. CIPROBETA 250 MG FILMTABLETTEN(CIPROFLOXACIN HYDROCHLORIDE) [Suspect]
     Indication: URINARY TRACT INFECTION
     Dosage: 250 MG, 2 IN 1 D, ORAL, 250 MG, 2 IN 1 D
     Route: 046
  3. FSME IMMUN(TICK-BORNE ENCEPHALITIS VACCINE) [Suspect]
     Indication: IMMUNISATION
     Dates: end: 20100301

REACTIONS (20)
  - HEPATIC PAIN [None]
  - YAWNING [None]
  - LOSS OF LIBIDO [None]
  - BLOOD CREATINE PHOSPHOKINASE INCREASED [None]
  - FATIGUE [None]
  - URINARY TRACT INFECTION [None]
  - RENAL PAIN [None]
  - CONFUSIONAL STATE [None]
  - SLEEP DISORDER [None]
  - MUSCULOSKELETAL STIFFNESS [None]
  - MUSCLE SPASMS [None]
  - IMPAIRED WORK ABILITY [None]
  - ERYTHEMA [None]
  - NECK PAIN [None]
  - TENDON PAIN [None]
  - IMPAIRED DRIVING ABILITY [None]
  - NO THERAPEUTIC RESPONSE [None]
  - HAEMORRHAGIC DIATHESIS [None]
  - BLOOD PRESSURE INCREASED [None]
  - BLOOD TESTOSTERONE DECREASED [None]
